FAERS Safety Report 13527948 (Version 2)
Quarter: 2017Q2

REPORT INFORMATION
  Report Type: Spontaneous
  Country: US (occurrence: US)
  Receive Date: 20170509
  Receipt Date: 20170509
  Transmission Date: 20170830
  Serious: No
  Sender: FDA-Public Use
  Company Number: US-PFIZER INC-2017199938

PATIENT
  Sex: Female

DRUGS (1)
  1. XELJANZ [Suspect]
     Active Substance: TOFACITINIB CITRATE
     Dosage: 5 MG, UNK

REACTIONS (9)
  - Intentional product misuse [Unknown]
  - Abdominal pain [Recovering/Resolving]
  - Oropharyngeal pain [Unknown]
  - Sinus congestion [Unknown]
  - Headache [Unknown]
  - Musculoskeletal discomfort [Unknown]
  - Arthralgia [Recovering/Resolving]
  - Parvovirus infection [Unknown]
  - Rash erythematous [Unknown]
